FAERS Safety Report 21006991 (Version 2)
Quarter: 2022Q4

REPORT INFORMATION
  Report Type: Report from Study
  Country: US (occurrence: US)
  Receive Date: 20220625
  Receipt Date: 20221103
  Transmission Date: 20230112
  Serious: Yes (Other)
  Sender: FDA-Public Use
  Company Number: US-BRISTOL-MYERS SQUIBB COMPANY-2022-050175

PATIENT
  Age: 77 Year
  Sex: Male
  Weight: 97.5 kg

DRUGS (1)
  1. REVLIMID [Suspect]
     Active Substance: LENALIDOMIDE
     Indication: Plasma cell myeloma
     Dosage: FREQUENCY: FOR 21 DAYS, DAYS 1-21, OFF FOR 7 DAYS REPEAT?LOT EXPIRATION DATE: 30-SEP-2024
     Route: 048
     Dates: start: 201707

REACTIONS (3)
  - Foreign body in throat [Unknown]
  - COVID-19 [Recovered/Resolved]
  - White blood cell count decreased [Unknown]

NARRATIVE: CASE EVENT DATE: 20220528
